FAERS Safety Report 8208166-2 (Version None)
Quarter: 2012Q1

REPORT INFORMATION
  Report Type: 
  Country: None (occurrence: None)
  Receive Date: 20120314
  Receipt Date: 20120307
  Transmission Date: 20120608
  Serious: Yes (Hospitalization, Disabling, Other)
  Sender: FDA-Public Use
  Company Number: PHEH2007US02903

PATIENT
  Sex: Female

DRUGS (58)
  1. PRILOSEC [Concomitant]
     Dosage: UNK
  2. CITALOPRAM [Concomitant]
     Dosage: 40 MG, QD
  3. MULTI-VITAMINS [Concomitant]
  4. LANTUS [Concomitant]
  5. TAXOL [Concomitant]
  6. LIPITOR [Concomitant]
     Dosage: 10 MG, QD
  7. TAMOXIFEN CITRATE [Concomitant]
     Indication: BREAST CANCER
     Dosage: 20 MG, QD
     Dates: start: 20030605
  8. FEMARA [Concomitant]
     Dosage: 2.5 MG, QD
  9. PERIDEX [Concomitant]
  10. NEURONTIN [Concomitant]
  11. TRICOR [Concomitant]
  12. FISH OIL [Concomitant]
  13. METOPROLOL SUCCINATE [Concomitant]
     Dosage: UNK
  14. DIPHENHYDRAMINE HCL [Concomitant]
     Dosage: 50 MG, QW
  15. ZOMETA [Suspect]
     Indication: BONE LOSS
  16. NIASPAN [Concomitant]
  17. LOMOTIL [Concomitant]
     Dosage: UNK
  18. EFFEXOR [Concomitant]
     Dosage: 37.5 MG, QD
     Route: 048
  19. NAPROXEN SODIUM [Concomitant]
  20. EPINEPHRINE [Concomitant]
     Dosage: 1 MG, PRN
  21. DIAZEPAM [Concomitant]
     Dosage: 10 MG, UNK
     Route: 048
  22. OXYCODONE HCL [Concomitant]
  23. NEXIUM [Concomitant]
     Dosage: UNK
     Route: 048
  24. AVASTIN [Concomitant]
  25. XELODA [Concomitant]
  26. FENTANYL [Concomitant]
     Route: 062
  27. CHANTIX [Concomitant]
     Indication: SMOKING CESSATION THERAPY
     Dosage: 0.5 MG, BID
  28. AROMASIN [Concomitant]
     Indication: BREAST CANCER
  29. CELEXA [Concomitant]
     Dosage: 40 MG, QD
  30. TRICHLORMETHIAZIDE [Concomitant]
     Dosage: 48 MG, QD
  31. GRAPE SEED [Concomitant]
  32. ACETAMINOPHEN [Concomitant]
     Dosage: UNK
  33. LIDODERM [Concomitant]
  34. LOVAZA [Concomitant]
  35. ASPIRIN [Concomitant]
     Dosage: 81 MG, QD
  36. VANCOMYCIN [Concomitant]
     Dosage: 1 G, QD
  37. HYDROMORPHONE HCL [Concomitant]
     Dosage: 2 MG, UNK
     Route: 048
  38. SENNA-S (DOCUSATE SODIUM/SENNOSIDES) [Concomitant]
     Dosage: UNK
     Route: 048
  39. ZOMETA [Suspect]
     Indication: BONE NEOPLASM MALIGNANT
     Dosage: QW3
     Dates: start: 20060101, end: 20060417
  40. FASLODEX [Concomitant]
  41. CRESTOR [Concomitant]
  42. MECLIZINE [Concomitant]
     Dosage: UNK
  43. FAMOTIDINE [Concomitant]
     Dosage: 20 MG, QW
  44. METRONIDAZOLE [Concomitant]
     Dosage: 500 MG, UNK
     Route: 048
  45. PROTONIX [Concomitant]
     Dosage: 40 MG, QD
  46. PROCHLORPERAZINE [Concomitant]
     Dosage: 10 MG, PRN
  47. XANAX [Concomitant]
     Dosage: 0.5 MG, TID
  48. CELEBREX [Concomitant]
     Dosage: 200 MG, BID
  49. DEXAMETHASONE [Concomitant]
     Dosage: 20 MG, QW
  50. MORPHINE [Concomitant]
     Dosage: 4 MG, UNK
  51. INSULIN LISPRO [Concomitant]
     Dosage: UNK
  52. DESIPRAMINE HCL [Concomitant]
     Dosage: 10 MG, PRN
  53. ZOLADEX [Concomitant]
     Dosage: 10.8 MG, UNK
     Route: 058
  54. METFORMIN [Concomitant]
  55. LEVOFLOXACIN [Concomitant]
     Dosage: 500 MG, ONCE/SINGLE
  56. HYDROXYZINE [Concomitant]
     Dosage: 25 MG, QW
     Route: 048
  57. HYDROCORTISONE SODIUM SUCCINATE [Concomitant]
     Dosage: 100 MG, PRN
  58. DAPTOMYCIN [Concomitant]
     Dosage: 440 MG, UNK

REACTIONS (52)
  - CELLULITIS [None]
  - LYMPHADENOPATHY [None]
  - PAIN [None]
  - DECREASED INTEREST [None]
  - POLYNEUROPATHY [None]
  - BRONCHIAL HYPERREACTIVITY [None]
  - PALMAR-PLANTAR ERYTHRODYSAESTHESIA SYNDROME [None]
  - GLUCOSE TOLERANCE IMPAIRED [None]
  - ANXIETY [None]
  - TOOTH ABSCESS [None]
  - DEPRESSION [None]
  - HYPERTENSION [None]
  - COUGH [None]
  - LIGAMENT SPRAIN [None]
  - HYPOTHYROIDISM [None]
  - ACUTE SINUSITIS [None]
  - PHARYNGITIS [None]
  - AMNESIA [None]
  - OSTEONECROSIS OF JAW [None]
  - GENERAL PHYSICAL HEALTH DETERIORATION [None]
  - PRIMARY SEQUESTRUM [None]
  - PYREXIA [None]
  - NAUSEA [None]
  - FALL [None]
  - GROIN ABSCESS [None]
  - SPINAL COMPRESSION FRACTURE [None]
  - ACTINOMYCOSIS [None]
  - HEADACHE [None]
  - APHTHOUS STOMATITIS [None]
  - CARDIAC DISORDER [None]
  - DIARRHOEA [None]
  - METASTASES TO LIVER [None]
  - VERTEBRAL FORAMINAL STENOSIS [None]
  - ARTHRALGIA [None]
  - EXCORIATION [None]
  - OTITIS MEDIA ACUTE [None]
  - BLOOD PRESSURE INCREASED [None]
  - WEIGHT INCREASED [None]
  - PULMONARY EMBOLISM [None]
  - ROAD TRAFFIC ACCIDENT [None]
  - BONE DISORDER [None]
  - SPINAL CLAUDICATION [None]
  - DIABETES MELLITUS [None]
  - GASTROOESOPHAGEAL REFLUX DISEASE [None]
  - ORTHOSTATIC HYPOTENSION [None]
  - FOLLICULITIS [None]
  - PNEUMONIA [None]
  - DIZZINESS [None]
  - METABOLIC SYNDROME [None]
  - CANDIDIASIS [None]
  - OSTEOARTHRITIS [None]
  - MUSCLE SPASMS [None]
